FAERS Safety Report 11448156 (Version 2)
Quarter: 2015Q4

REPORT INFORMATION
  Report Type: Spontaneous
  Country: US (occurrence: US)
  Receive Date: 20150902
  Receipt Date: 20151120
  Transmission Date: 20160304
  Serious: Yes (Death, Hospitalization, Other)
  Sender: FDA-Public Use
  Company Number: US-PFIZER INC-2015292922

PATIENT
  Age: 69 Year
  Sex: Male

DRUGS (5)
  1. DEPO-TESTOSTERONE [Suspect]
     Active Substance: TESTOSTERONE CYPIONATE
     Indication: ASTHENIA
  2. LANTUS U-100 [Concomitant]
     Indication: DIABETES MELLITUS
     Dosage: 10 ML, UNK
     Dates: end: 2014
  3. DEPO-TESTOSTERONE [Suspect]
     Active Substance: TESTOSTERONE CYPIONATE
     Indication: LIBIDO DECREASED
  4. DEPO-TESTOSTERONE [Suspect]
     Active Substance: TESTOSTERONE CYPIONATE
     Indication: HORMONE REPLACEMENT THERAPY
     Dosage: UNK
     Dates: start: 201112, end: 201206
  5. DEPO-TESTOSTERONE [Suspect]
     Active Substance: TESTOSTERONE CYPIONATE
     Indication: FATIGUE

REACTIONS (6)
  - Urinary tract infection [Fatal]
  - Dementia [Unknown]
  - Transient ischaemic attack [Unknown]
  - Pneumonia [Fatal]
  - Cardiopulmonary failure [Fatal]
  - Myocardial infarction [Unknown]

NARRATIVE: CASE EVENT DATE: 201206
